FAERS Safety Report 10684465 (Version 2)
Quarter: 2015Q1

REPORT INFORMATION
  Report Type: Report from Study
  Country: US (occurrence: US)
  Receive Date: 20141231
  Receipt Date: 20150218
  Transmission Date: 20150720
  Serious: Yes (Hospitalization)
  Sender: FDA-Public Use
  Company Number: PHEH2014US025598

PATIENT
  Sex: Male

DRUGS (1)
  1. EXJADE [Suspect]
     Active Substance: DEFERASIROX
     Indication: IRON OVERLOAD
     Dosage: 1250 MG, QD (500MG 2QD AND 250MG 1QD)
     Route: 048

REACTIONS (5)
  - Laceration [Unknown]
  - Asthenia [Unknown]
  - Haemoglobin decreased [Unknown]
  - Fall [Unknown]
  - Contusion [Unknown]
